FAERS Safety Report 8177201-2 (Version None)
Quarter: 2012Q1

REPORT INFORMATION
  Report Type: 
  Country: None (occurrence: None)
  Receive Date: 20120301
  Receipt Date: 20120220
  Transmission Date: 20120608
  Serious: Yes (Other)
  Sender: FDA-Public Use
  Company Number: BE-JNJFOC-20120210920

PATIENT
  Age: 7 Year
  Sex: Male

DRUGS (2)
  1. REMICADE [Suspect]
     Indication: COLITIS ULCERATIVE
     Route: 042
     Dates: start: 20111222
  2. IMURAN [Suspect]
     Indication: COLITIS ULCERATIVE
     Route: 065
     Dates: end: 20120127

REACTIONS (2)
  - COLITIS ULCERATIVE [None]
  - PANCREATITIS [None]
